FAERS Safety Report 19919079 (Version 1)
Quarter: 2021Q4

REPORT INFORMATION
  Report Type: Spontaneous
  Country: IQ (occurrence: IQ)
  Receive Date: 20211005
  Receipt Date: 20211005
  Transmission Date: 20220303
  Serious: No
  Sender: FDA-Public Use
  Company Number: IQ-LUPIN PHARMACEUTICALS INC.-2021-18274

PATIENT
  Age: 6 Year
  Sex: Female

DRUGS (4)
  1. CEFTRIAXONE [Suspect]
     Active Substance: CEFTRIAXONE
     Indication: COVID-19
     Dosage: 1 MILLIGRAM, BID
     Route: 042
     Dates: start: 20210717
  2. DEXTROSE [Suspect]
     Active Substance: DEXTROSE
     Indication: COVID-19
     Dosage: UNK (GLUCOSE SALINE)
     Route: 065
  3. FLAGYL [Suspect]
     Active Substance: METRONIDAZOLE\METRONIDAZOLE HYDROCHLORIDE
     Indication: COVID-19
     Dosage: UNK, QD (FLAGYL BOTTLE FOR EVERY 24 HOURS FOR 3 DAYS DURATION)
     Route: 065
  4. ACETAMINOPHEN [Concomitant]
     Active Substance: ACETAMINOPHEN
     Indication: Prophylaxis
     Dosage: UNK, PRN (AS NEEDED)
     Route: 065

REACTIONS (1)
  - Off label use [Unknown]
